FAERS Safety Report 21833088 (Version 1)
Quarter: 2023Q1

REPORT INFORMATION
  Report Type: Spontaneous
  Country: US (occurrence: US)
  Receive Date: 20230106
  Receipt Date: 20230106
  Transmission Date: 20230418
  Serious: No
  Sender: FDA-Public Use
  Company Number: US-ALLERGAN-2241636US

PATIENT
  Age: 62 Year
  Sex: Male

DRUGS (1)
  1. QULIPTA [Suspect]
     Active Substance: ATOGEPANT
     Indication: Migraine
     Dosage: 60 UNITS, QD
     Route: 048
     Dates: start: 20221214, end: 20221218

REACTIONS (5)
  - Haemorrhage [Recovered/Resolved]
  - Epistaxis [Recovering/Resolving]
  - Abdominal pain upper [Recovered/Resolved]
  - Nausea [Unknown]
  - Headache [Recovering/Resolving]

NARRATIVE: CASE EVENT DATE: 20221201
